FAERS Safety Report 8986787 (Version 1)
Quarter: 2012Q4

REPORT INFORMATION
  Report Type: 
  Country: CO (occurrence: CO)
  Receive Date: 20121227
  Receipt Date: 20121227
  Transmission Date: 20130627
  Serious: Yes (Other)
  Sender: FDA-Public Use
  Company Number: PHHY2012CO105607

PATIENT
  Age: 64 Year
  Sex: Female
  Weight: 70 kg

DRUGS (3)
  1. ACLASTA [Suspect]
     Indication: OSTEOPOROSIS
     Dosage: 5 mg/100 ml
     Route: 042
     Dates: start: 20121108
  2. CALCIUM [Concomitant]
  3. TIROSINT [Concomitant]

REACTIONS (6)
  - Ulcer [Recovered/Resolved]
  - Hiatus hernia [Recovered/Resolved]
  - Gastritis [Recovered/Resolved]
  - Chills [Unknown]
  - Pyrexia [Unknown]
  - Pain [Unknown]
